FAERS Safety Report 4802244-3 (Version None)
Quarter: 2005Q4

REPORT INFORMATION
  Report Type: 
  Country: None (occurrence: None)
  Receive Date: 20051012
  Receipt Date: 20050930
  Transmission Date: 20060501
  Serious: Yes (Other)
  Sender: FDA-Public Use
  Company Number: 142907USA

PATIENT
  Age: 52 Year
  Sex: Female
  Weight: 80.7403 kg

DRUGS (10)
  1. COPAXONE [Suspect]
     Indication: MULTIPLE SCLEROSIS
     Dosage: 20 MILLIGRAM QD SUBCUTANEOUS
     Route: 058
     Dates: start: 20020508
  2. BACLOFEN [Concomitant]
  3. MIRTAZAPINE [Concomitant]
  4. RESTORIL [Concomitant]
  5. NABUMETONE [Concomitant]
  6. ZOLOFT [Concomitant]
  7. DIPHENHYDRAMINE HCL [Concomitant]
  8. PRIMIDONE [Concomitant]
  9. ATENOLOL [Concomitant]
  10. RISPERDAL [Concomitant]

REACTIONS (10)
  - CONTUSION [None]
  - DRUG ADMINISTRATION ERROR [None]
  - HAEMATOMA [None]
  - INFECTION [None]
  - INJECTION SITE HAEMORRHAGE [None]
  - INJECTION SITE REACTION [None]
  - INJECTION SITE ULCER [None]
  - OPEN WOUND [None]
  - URINARY TRACT INFECTION [None]
  - WOUND INFECTION [None]
